FAERS Safety Report 7303043-3 (Version None)
Quarter: 2011Q1

REPORT INFORMATION
  Report Type: 
  Country: None (occurrence: None)
  Receive Date: 20110221
  Receipt Date: 20110209
  Transmission Date: 20110831
  Serious: Yes (Hospitalization, Other)
  Sender: FDA-Public Use
  Company Number: US-BIOGENIDEC-2009BI041292

PATIENT
  Sex: Female
  Weight: 44 kg

DRUGS (2)
  1. AVONEX [Suspect]
     Indication: MULTIPLE SCLEROSIS
     Route: 030
     Dates: start: 20060811, end: 20071001
  2. AVONEX [Suspect]
     Route: 030
     Dates: end: 20110101

REACTIONS (11)
  - BACK DISORDER [None]
  - ULTRASOUND SCAN ABNORMAL [None]
  - CONTUSION [None]
  - FALL [None]
  - OEDEMA PERIPHERAL [None]
  - SPINAL OSTEOARTHRITIS [None]
  - HEAD INJURY [None]
  - TIBIA FRACTURE [None]
  - THYROID CANCER [None]
  - CAROTID ARTERY OCCLUSION [None]
  - EXCORIATION [None]
